FAERS Safety Report 5593406-9 (Version None)
Quarter: 2007Q4

REPORT INFORMATION
  Report Type: 
  Country: None (occurrence: None)
  Receive Date: 20071218
  Receipt Date: 20070702
  Transmission Date: 20080405
  Serious: Yes (Hospitalization, Other)
  Sender: FDA-Public Use
  Company Number: 2006155553

PATIENT
  Age: 33 Year
  Sex: Female
  Weight: 63.5 kg

DRUGS (1)
  1. BEXTRA [Suspect]
     Indication: MIGRAINE
     Dosage: 20 MG (10 MG,2 IN 1 D),ORAL
     Route: 048
     Dates: start: 20040710, end: 20040725

REACTIONS (1)
  - PULMONARY EMBOLISM [None]
